FAERS Safety Report 9701874 (Version 2)
Quarter: 2013Q4

REPORT INFORMATION
  Report Type: Report from Study
  Country: US (occurrence: US)
  Receive Date: 20131121
  Receipt Date: 20131121
  Transmission Date: 20140711
  Serious: Yes (Hospitalization)
  Sender: FDA-Public Use
  Company Number: US-ACTELION-A-US2011-49245

PATIENT
  Age: 65 Year
  Sex: Female

DRUGS (18)
  1. TRACLEER [Suspect]
     Indication: PULMONARY ARTERIAL HYPERTENSION
     Dosage: 125 MG, BID
     Route: 048
     Dates: start: 20090212
  2. TRACLEER [Suspect]
     Dosage: UNK
     Route: 048
  3. ALLEGRA-D [Suspect]
     Dosage: 1 TABLET, 180/240 MG, QD
     Dates: start: 201310
  4. REVATIO [Concomitant]
     Dosage: 20 MG, TID
     Dates: start: 2009
  5. SYMBICORT [Concomitant]
     Dosage: 160/12.5 MCG, QD
     Dates: start: 2005
  6. ALDACTONE [Concomitant]
     Dosage: 12.5 MG, QD
     Dates: start: 2009
  7. DIGOXIN [Concomitant]
     Dosage: 0.125 MG, QD
     Dates: start: 2005
  8. POTASSIUM [Concomitant]
     Dosage: 10 MEQ, QD
     Dates: start: 2005
  9. ASPIRIN [Concomitant]
     Dosage: 81 MG, QD
     Dates: start: 2005
  10. DILTIAZEM HCL CR [Concomitant]
     Dosage: 180 MG, QD
     Dates: start: 2005
  11. TRAMADOL [Concomitant]
     Dosage: 50 MG, PRN
     Dates: start: 2005
  12. XANAX [Concomitant]
     Dosage: 0.5 MG, PRN
     Dates: start: 2005
  13. NEXIUM [Concomitant]
     Dosage: 40 MG, PRN
     Dates: start: 2005
  14. TESSALON [Concomitant]
     Dosage: 1 CAPSULE, Q3-4HRS
     Dates: start: 2005
  15. HYDROCODONE [Concomitant]
     Dosage: 7.5/200 MG, EVERY 8HR
     Dates: start: 2005
  16. TYVASO [Concomitant]
     Dosage: 1.74/2.9 ML QID
     Dates: start: 2009
  17. FERGON [Concomitant]
  18. BUMEX [Concomitant]
     Dosage: 2 MG, UNK

REACTIONS (15)
  - Pulmonary oedema [Recovered/Resolved]
  - Epistaxis [Not Recovered/Not Resolved]
  - Sinus disorder [Not Recovered/Not Resolved]
  - Pneumonia [Not Recovered/Not Resolved]
  - Dyspnoea [Unknown]
  - Heart rate increased [Not Recovered/Not Resolved]
  - Fluid retention [Unknown]
  - Headache [Not Recovered/Not Resolved]
  - Lower respiratory tract infection [Unknown]
  - Pruritus [Unknown]
  - Asthenia [Unknown]
  - Multiple allergies [Not Recovered/Not Resolved]
  - Lacrimation increased [Not Recovered/Not Resolved]
  - Oedema peripheral [Recovered/Resolved]
  - Hypertension [Unknown]
